FAERS Safety Report 8812677 (Version 1)
Quarter: 2012Q4

REPORT INFORMATION
  Report Type: 
  Country: DE (occurrence: DE)
  Receive Date: 20120927
  Receipt Date: 20120927
  Transmission Date: 20130627
  Serious: Yes (Other)
  Sender: FDA-Public Use
  Company Number: PHHY2012DE083567

PATIENT
  Age: 49 Year
  Sex: Male

DRUGS (3)
  1. CICLOSPORIN [Suspect]
     Indication: RENAL TRANSPLANT
     Dosage: 250 mg, per day
  2. PREDNISOLONE [Suspect]
     Indication: BURKITT^S LYMPHOMA STAGE IV
     Dosage: 5 mg, per day
  3. PREDNISOLONE [Suspect]
     Indication: RENAL TRANSPLANT
     Dosage: 20 mg, per day

REACTIONS (3)
  - Burkitt^s lymphoma stage IV [Unknown]
  - Local swelling [Unknown]
  - Epstein-Barr virus infection [Unknown]
